FAERS Safety Report 12223545 (Version 1)
Quarter: 2016Q1

REPORT INFORMATION
  Report Type: Report from Study
  Country: BR (occurrence: BR)
  Receive Date: 20160330
  Receipt Date: 20160330
  Transmission Date: 20160526
  Serious: Yes (Other)
  Sender: FDA-Public Use
  Company Number: BR-ABBVIE-16K-020-1592292-00

PATIENT
  Age: 52 Year
  Sex: Female
  Weight: 87 kg

DRUGS (4)
  1. HUMIRA [Suspect]
     Active Substance: ADALIMUMAB
     Indication: RHEUMATOID ARTHRITIS
     Route: 058
     Dates: start: 20120309
  2. CORUS [Concomitant]
     Active Substance: LOSARTAN POTASSIUM
     Indication: BLOOD PRESSURE ABNORMAL
     Route: 048
  3. PREDNISONE. [Concomitant]
     Active Substance: PREDNISONE
     Indication: ARTHRITIS
     Route: 048
  4. ARAVA [Concomitant]
     Active Substance: LEFLUNOMIDE
     Indication: ARTHRITIS
     Route: 048

REACTIONS (12)
  - Anxiety [Unknown]
  - Pain [Recovering/Resolving]
  - Arthropathy [Unknown]
  - Intervertebral disc protrusion [Not Recovered/Not Resolved]
  - Obesity [Recovering/Resolving]
  - Blood cholesterol abnormal [Unknown]
  - Cyst [Recovered/Resolved]
  - Osteoarthritis [Recovering/Resolving]
  - Blood glucose abnormal [Unknown]
  - Rheumatoid factor positive [Unknown]
  - Osteoporosis [Unknown]
  - Spinal osteoarthritis [Recovering/Resolving]

NARRATIVE: CASE EVENT DATE: 201504
